FAERS Safety Report 25013952 (Version 1)
Quarter: 2025Q1

REPORT INFORMATION
  Report Type: Spontaneous
  Country: US (occurrence: US)
  Receive Date: 20250226
  Receipt Date: 20250226
  Transmission Date: 20250409
  Serious: No
  Sender: JOHNSON AND JOHNSON
  Company Number: US-JNJFOC-20241284473

PATIENT
  Age: 53 Year
  Sex: Female
  Weight: 72.6 kg

DRUGS (17)
  1. OPSUMIT [Suspect]
     Active Substance: MACITENTAN
     Indication: Product used for unknown indication
     Route: 048
  2. TREPROSTINIL [Suspect]
     Active Substance: TREPROSTINIL
     Indication: Pulmonary arterial hypertension
     Route: 048
     Dates: start: 202407
  3. ORENITRAM [Suspect]
     Active Substance: TREPROSTINIL
     Indication: Pulmonary arterial hypertension
  4. ORENITRAM [Suspect]
     Active Substance: TREPROSTINIL
  5. ACETAMINOPHEN [Concomitant]
     Active Substance: ACETAMINOPHEN
  6. NORVASC [Concomitant]
     Active Substance: AMLODIPINE BESYLATE
  7. AUGMENTIN [Concomitant]
     Active Substance: AMOXICILLIN\CLAVULANATE POTASSIUM
  8. LIPITOR [Concomitant]
     Active Substance: ATORVASTATIN CALCIUM
  9. DOCUSATE SODIUM [Concomitant]
     Active Substance: DOCUSATE SODIUM
  10. REVIA [Concomitant]
     Active Substance: NALTREXONE HYDROCHLORIDE
  11. ZOFRAN [Concomitant]
     Active Substance: ONDANSETRON HYDROCHLORIDE
  12. PHENERGAN [Concomitant]
     Active Substance: PROMETHAZINE HYDROCHLORIDE
  13. SENOKOT [Concomitant]
     Active Substance: SENNOSIDES
  14. TADALAFIL [Concomitant]
     Active Substance: TADALAFIL
  15. DEMADEX [Concomitant]
     Active Substance: TORSEMIDE
  16. ROBAXIN [Concomitant]
     Active Substance: METHOCARBAMOL
  17. OXYGEN [Concomitant]
     Active Substance: OXYGEN

REACTIONS (2)
  - Oedema peripheral [Unknown]
  - Weight decreased [Unknown]
